FAERS Safety Report 10054973 (Version 2)
Quarter: 2014Q2

REPORT INFORMATION
  Report Type: Report from Study
  Country: AU (occurrence: AU)
  Receive Date: 20140402
  Receipt Date: 20140416
  Transmission Date: 20141212
  Serious: Yes (Hospitalization, Other)
  Sender: FDA-Public Use
  Company Number: PHHY2014AU037595

PATIENT
  Age: 71 Year
  Sex: Female

DRUGS (12)
  1. ACLASTA [Suspect]
     Indication: OSTEOPOROSIS
     Dosage: 5 MG, UNK
     Route: 042
     Dates: start: 20130503
  2. ACLASTA [Suspect]
     Dosage: 5 MG PER 100 ML (ONCE YEARLY)
     Route: 042
     Dates: start: 20140325
  3. PREDNISOLONE [Concomitant]
     Dosage: 4 MG, UNK
  4. PREDNISOLONE [Concomitant]
     Dosage: 3 MG, UNK
     Dates: end: 20130629
  5. AZATHIOPRINE [Concomitant]
     Dosage: 50 MG, UNK
  6. PANADOL OSTEO [Concomitant]
     Dosage: 2 DF, TID
     Route: 048
     Dates: start: 20130718
  7. TEMAZE [Concomitant]
     Dosage: 1 NOCTE, PRN
     Route: 048
     Dates: start: 20130718
  8. URSODEOXYCHOLIC ACID [Concomitant]
     Dosage: UNK UKN, UNK
  9. IMURAN [Concomitant]
     Dosage: 100 MG, UNK
  10. ZOMETA [Concomitant]
     Indication: OSTEOPOROSIS
     Dosage: UNK UKN, UNK
  11. VAXIGRIP [Concomitant]
     Dosage: UNK UKN, UNK
     Dates: start: 20140325
  12. FLUIREX [Concomitant]
     Dosage: UNK UKN, UNK
     Dates: start: 20130513

REACTIONS (13)
  - Autoimmune hepatitis [Unknown]
  - Fatigue [Unknown]
  - Liver function test abnormal [Unknown]
  - Blood bilirubin abnormal [Unknown]
  - Intraductal papillary-mucinous carcinoma of pancreas [Unknown]
  - Abdominal pain [Unknown]
  - Pancreatic mass [Unknown]
  - Cholangitis sclerosing [Unknown]
  - Concomitant disease aggravated [Unknown]
  - Hepatitis [Unknown]
  - Vertigo positional [Unknown]
  - Dizziness [Unknown]
  - Inappropriate schedule of drug administration [Unknown]
